FAERS Safety Report 6579480-1 (Version None)
Quarter: 2010Q1

REPORT INFORMATION
  Report Type: 
  Country: None (occurrence: None)
  Receive Date: 20100212
  Receipt Date: 20100201
  Transmission Date: 20100710
  Serious: Yes (Hospitalization)
  Sender: FDA-Public Use
  Company Number: BE-CELGENEUS-013-50794-09090868

PATIENT
  Sex: Male

DRUGS (3)
  1. VIDAZA [Suspect]
     Route: 050
     Dates: start: 20090323
  2. VIDAZA [Suspect]
     Route: 050
     Dates: end: 20090727
  3. VIDAZA [Suspect]
     Route: 050
     Dates: start: 20091228

REACTIONS (1)
  - DEMENTIA [None]
